FAERS Safety Report 9726596 (Version 1)
Quarter: 2013Q4

REPORT INFORMATION
  Report Type: Spontaneous
  Country: US (occurrence: None)
  Receive Date: 20131202
  Receipt Date: 20131202
  Transmission Date: 20140711
  Serious: Yes (Hospitalization, Other)
  Sender: FDA-Public Use
  Company Number: None

PATIENT
  Age: 45 Year
  Sex: Male
  Weight: 69.5 kg

DRUGS (1)
  1. SULFAMETHOXAZOLE/TRIMETHOPRIM [Suspect]
     Route: 048
     Dates: start: 20131113, end: 20131121

REACTIONS (5)
  - Molluscum contagiosum [None]
  - Petechiae [None]
  - Contusion [None]
  - Red blood cells urine positive [None]
  - Thrombocytopenia [None]
